FAERS Safety Report 7792880-7 (Version None)
Quarter: 2011Q4

REPORT INFORMATION
  Report Type: 
  Country: None (occurrence: None)
  Receive Date: 20111003
  Receipt Date: 20110920
  Transmission Date: 20120403
  Serious: Yes (Hospitalization)
  Sender: FDA-Public Use
  Company Number: US-BAYER-2011-015013

PATIENT
  Age: 27 Year
  Sex: Female
  Weight: 63.5 kg

DRUGS (5)
  1. DROSPIRENONE AND ETHINYL ESTRADIOL [Suspect]
     Indication: CONTRACEPTION
     Dosage: UNK
     Route: 048
     Dates: start: 20080801, end: 20100301
  2. VICODIN [Concomitant]
     Dosage: UNK UNK, PRN
     Dates: start: 20090309
  3. ROXICODONE [Concomitant]
     Dosage: UNK
     Dates: start: 20100309
  4. IBUPROFEN [Concomitant]
  5. VALIUM [Concomitant]
     Dosage: 5 MG, QID
     Dates: start: 20090309

REACTIONS (5)
  - PULMONARY INFARCTION [None]
  - ANXIETY [None]
  - PULMONARY EMBOLISM [None]
  - PAIN [None]
  - DEPRESSION [None]
